FAERS Safety Report 16937552 (Version 1)
Quarter: 2019Q4

REPORT INFORMATION
  Report Type: Spontaneous
  Country: JP (occurrence: JP)
  Receive Date: 20191018
  Receipt Date: 20191018
  Transmission Date: 20200122
  Serious: Yes (Other)
  Sender: FDA-Public Use
  Company Number: JP-ASTRAZENECA-2019SF47181

PATIENT
  Age: 70 Year
  Sex: Male

DRUGS (1)
  1. IMFINZI [Suspect]
     Active Substance: DURVALUMAB
     Indication: NON-SMALL CELL LUNG CANCER
     Route: 041
     Dates: start: 20180919, end: 20190821

REACTIONS (4)
  - Pulmonary embolism [Unknown]
  - Appendicitis [Unknown]
  - Radiation pneumonitis [Unknown]
  - Embolism venous [Unknown]

NARRATIVE: CASE EVENT DATE: 2018
